FAERS Safety Report 21008423 (Version 1)
Quarter: 2022Q2

REPORT INFORMATION
  Report Type: Report from Study
  Country: US (occurrence: US)
  Receive Date: 20220627
  Receipt Date: 20220627
  Transmission Date: 20220721
  Serious: Yes (Hospitalization)
  Sender: FDA-Public Use
  Company Number: US-LEO Pharma-343553

PATIENT
  Sex: Female

DRUGS (2)
  1. DEVICE [Suspect]
     Active Substance: DEVICE
     Indication: Dermatitis atopic
  2. ADBRY [Suspect]
     Active Substance: TRALOKINUMAB-LDRM
     Indication: Dermatitis atopic

REACTIONS (1)
  - Hospitalisation [Unknown]
